FAERS Safety Report 23837407 (Version 1)
Quarter: 2024Q2

REPORT INFORMATION
  Report Type: Spontaneous
  Country: DE (occurrence: DE)
  Receive Date: 20240509
  Receipt Date: 20240509
  Transmission Date: 20240716
  Serious: Yes (Other)
  Sender: FDA-Public Use
  Company Number: None

PATIENT
  Age: 37 Year
  Sex: Male
  Weight: 70 kg

DRUGS (6)
  1. DOXYCYCLINE HYCLATE [Suspect]
     Active Substance: DOXYCYCLINE HYCLATE
     Dosage: DAILY DOSE: 10 DF DOSAGE FORM EVERY DAY
  2. LITHIUM ACETATE [Suspect]
     Active Substance: LITHIUM ACETATE
     Dosage: 2.7 G, 1X/DAY
     Route: 048
  3. AMOXICILLIN [Suspect]
     Active Substance: AMOXICILLIN
     Dosage: 500 MG, 1X/DAY
     Route: 048
  4. DICLOFENAC [Suspect]
     Active Substance: DICLOFENAC
     Dosage: 250 MG, 1X/DAY
     Route: 048
  5. SERTRALINE HYDROCHLORIDE [Suspect]
     Active Substance: SERTRALINE HYDROCHLORIDE
     Dosage: 1000 MG, 1X/DAY
     Route: 048
  6. IBUPROFEN [Suspect]
     Active Substance: IBUPROFEN
     Dosage: 3.6 G, 1X/DAY
     Route: 048

REACTIONS (3)
  - Intentional overdose [Unknown]
  - Suicide attempt [Unknown]
  - Dry mouth [Unknown]

NARRATIVE: CASE EVENT DATE: 20051130
